FAERS Safety Report 8756735 (Version 2)
Quarter: 2013Q1

REPORT INFORMATION
  Report Type: Spontaneous
  Country: US (occurrence: US)
  Receive Date: 20120828
  Receipt Date: 20120911
  Transmission Date: 20140127
  Serious: Yes (Hospitalization, Other)
  Sender: FDA-Public Use
  Company Number: US-009507513-1109USA02407

PATIENT
  Sex: 0

DRUGS (5)
  1. FOSAMAX [Suspect]
     Indication: OSTEOPOROSIS
     Dosage: 70 MG, QW
     Route: 048
     Dates: start: 2000, end: 200702
  2. FOSAMAX [Suspect]
     Indication: OSTEOPENIA
  3. MK-0954 [Concomitant]
     Indication: HYPERTENSION
     Dates: start: 2005
  4. BONIVA [Suspect]
     Indication: OSTEOPOROSIS
     Dosage: 150 MG, QM
     Dates: start: 200702, end: 201002
  5. BONIVA [Suspect]
     Indication: OSTEOPENIA

REACTIONS (60)
  - Femur fracture [Recovering/Resolving]
  - Bowen^s disease [Unknown]
  - Hepatitis alcoholic [Recovering/Resolving]
  - Gait disturbance [Recovered/Resolved]
  - Mitral valve incompetence [Unknown]
  - Tricuspid valve incompetence [Unknown]
  - Fibrosis [Unknown]
  - Myopathy [Unknown]
  - Hypokalaemia [Recovering/Resolving]
  - Renal tubular acidosis [Unknown]
  - Fractured sacrum [Unknown]
  - Encephalopathy [Unknown]
  - Asthenia [Recovered/Resolved]
  - Coagulopathy [Unknown]
  - Oedema peripheral [Unknown]
  - Fall [Unknown]
  - Pubis fracture [Unknown]
  - Cirrhosis alcoholic [Unknown]
  - Gait disturbance [Unknown]
  - Wrist fracture [Unknown]
  - Gout [Unknown]
  - Fractured sacrum [Unknown]
  - Asthenia [Unknown]
  - Hypothyroidism [Unknown]
  - Anxiety [Unknown]
  - Blood cholesterol increased [Unknown]
  - Lipoma [Unknown]
  - Osteoarthritis [Unknown]
  - Groin pain [Unknown]
  - Colitis ischaemic [Unknown]
  - Fatigue [Unknown]
  - Hepatitis C [Unknown]
  - Oestrogen deficiency [Unknown]
  - Fall [Unknown]
  - Spinal osteoarthritis [Not Recovered/Not Resolved]
  - Lumbar spinal stenosis [Not Recovered/Not Resolved]
  - Osteoarthritis [Not Recovered/Not Resolved]
  - Urinary incontinence [Unknown]
  - Polyp [Unknown]
  - Nasopharyngitis [Unknown]
  - Lipoma [Unknown]
  - Gait disturbance [Unknown]
  - Fatigue [Unknown]
  - Peripheral coldness [Unknown]
  - Chronic obstructive pulmonary disease [Unknown]
  - Drug eruption [Unknown]
  - Disease progression [Unknown]
  - Carotid artery stenosis [Unknown]
  - Dermatitis contact [Unknown]
  - Impaired healing [Unknown]
  - Muscle strain [Unknown]
  - Radius fracture [Unknown]
  - Fracture malunion [Unknown]
  - Fall [Unknown]
  - Musculoskeletal discomfort [Unknown]
  - Limb discomfort [Unknown]
  - Drug hypersensitivity [Unknown]
  - Oedema peripheral [Recovered/Resolved]
  - Back pain [Unknown]
  - Pain in extremity [Unknown]
